FAERS Safety Report 12998692 (Version 1)
Quarter: 2016Q4

REPORT INFORMATION
  Report Type: Spontaneous
  Country: GB (occurrence: GB)
  Receive Date: 20161205
  Receipt Date: 20161205
  Transmission Date: 20170207
  Serious: Yes (Life-Threatening, Hospitalization, Other)
  Sender: FDA-Public Use
  Company Number: GB-PFIZER INC-2016556005

PATIENT
  Age: 57 Year
  Sex: Male
  Weight: 73 kg

DRUGS (14)
  1. VECURONIUM [Concomitant]
     Active Substance: VECURONIUM BROMIDE
     Dosage: UNK
     Dates: start: 20161117, end: 20161117
  2. OMEPRAZOLE. [Concomitant]
     Active Substance: OMEPRAZOLE
     Dosage: UNK
  3. FENTANYL. [Concomitant]
     Active Substance: FENTANYL
     Dosage: UNK
     Dates: start: 20161117, end: 20161117
  4. CHLORHEXIDINE [Concomitant]
     Active Substance: CHLORHEXIDINE
     Dosage: UNK
     Dates: start: 20161117, end: 20161117
  5. SPIRONOLACTONE. [Concomitant]
     Active Substance: SPIRONOLACTONE
     Dosage: UNK
  6. URSODEOXYCHOLIC ACID [Concomitant]
     Active Substance: URSODIOL
     Dosage: UNK
  7. GELOFUSINE /00523001/ [Concomitant]
     Active Substance: POLYGELINE\POTASSIUM CHLORIDE\SODIUM CHLORIDE
     Dosage: 20 ML, UNK
     Dates: start: 20161117, end: 20161117
  8. IODINE. [Concomitant]
     Active Substance: IODINE
     Dosage: UNK
     Dates: start: 20161117, end: 20161117
  9. CARVEDILOL. [Concomitant]
     Active Substance: CARVEDILOL
     Dosage: UNK
  10. MIDAZOLAM [Concomitant]
     Active Substance: MIDAZOLAM\MIDAZOLAM HYDROCHLORIDE
     Dosage: UNK
     Dates: start: 20161117, end: 20161117
  11. THIOPENTONE /00053401/ [Concomitant]
     Active Substance: THIOPENTAL
     Dosage: UNK
     Dates: start: 20161117, end: 20161117
  12. ATRACURIUM BESILATE [Suspect]
     Active Substance: ATRACURIUM BESYLATE
     Indication: PARALYSIS
     Dosage: 5 MG, UNK (5 MLS/HR FOR 5 MINS)
     Route: 042
     Dates: start: 20161117, end: 20161117
  13. TAZOCIN [Suspect]
     Active Substance: PIPERACILLIN SODIUM\TAZOBACTAM SODIUM
     Indication: ANTIBIOTIC PROPHYLAXIS
     Dosage: 0.6 G, UNK (3ML TEST DOSE)
     Route: 042
     Dates: start: 20161117, end: 20161117
  14. RIFAXIMIN [Concomitant]
     Active Substance: RIFAXIMIN
     Dosage: UNK

REACTIONS (2)
  - Anaphylactic reaction [Recovering/Resolving]
  - Cardiac output decreased [Unknown]

NARRATIVE: CASE EVENT DATE: 20161117
